FAERS Safety Report 26096076 (Version 3)
Quarter: 2025Q4

REPORT INFORMATION
  Report Type: Spontaneous
  Country: RU (occurrence: RU)
  Receive Date: 20251127
  Receipt Date: 20251209
  Transmission Date: 20260118
  Serious: Yes (Other)
  Sender: VERITY PHARMACEUTICALS INC.
  Company Number: RU-VER-202500014

PATIENT
  Age: 47 Year
  Sex: Male

DRUGS (3)
  1. TRIPTORELIN PAMOATE [Suspect]
     Active Substance: TRIPTORELIN PAMOATE
     Indication: Prostate cancer metastatic
     Dosage: DRUG START: MAR -2024??POWDER FOR PROLONGED-RELEASE SUSPENSION FOR INJECT
     Route: 030
  2. TRIPTORELIN PAMOATE [Suspect]
     Active Substance: TRIPTORELIN PAMOATE
     Indication: Prostate cancer metastatic
     Dosage: POWDER FOR PROLONGED-RELEASE SUSPENSION FOR INJECT
     Route: 030
     Dates: end: 202105
  3. TRIPTORELIN PAMOATE [Suspect]
     Active Substance: TRIPTORELIN PAMOATE
     Indication: Prostate cancer metastatic
     Dosage: DRUG START : MAR- 2020?DRUG STOPPED : OCT-2020???POWDER FOR PROLONGED-RELEASE SUSPENSION FOR INJECT
     Route: 030

REACTIONS (9)
  - Lymphadenopathy [Unknown]
  - Osteoarthritis [Unknown]
  - Renal cyst [Unknown]
  - Lymphadenopathy [Unknown]
  - Metastases to spine [Unknown]
  - Inguinal hernia [Unknown]
  - Prostatic specific antigen increased [Unknown]
  - Pelvic fluid collection [Unknown]
  - Lymphocele [Unknown]

NARRATIVE: CASE EVENT DATE: 20201201
